FAERS Safety Report 5707530-0 (Version None)
Quarter: 2008Q2

REPORT INFORMATION
  Report Type: 
  Country: None (occurrence: None)
  Receive Date: 20080416
  Receipt Date: 20080407
  Transmission Date: 20081010
  Serious: Yes (Hospitalization, Other)
  Sender: FDA-Public Use
  Company Number: US-PFIZER INC-2008010447

PATIENT
  Age: 84 Year
  Sex: Female

DRUGS (1)
  1. ZOLOFT [Suspect]
     Indication: ABDOMINAL PAIN UPPER

REACTIONS (5)
  - AGITATION [None]
  - ANXIETY [None]
  - MENTAL IMPAIRMENT [None]
  - NERVOUSNESS [None]
  - TREMOR [None]
